FAERS Safety Report 6231694-6 (Version None)
Quarter: 2009Q2

REPORT INFORMATION
  Report Type: 
  Country: None (occurrence: None)
  Receive Date: 20090616
  Receipt Date: 20090609
  Transmission Date: 20091009
  Serious: Yes (Other)
  Sender: FDA-Public Use
  Company Number: CA-ASTRAZENECA-2009UW14747

PATIENT
  Age: 58 Year
  Sex: Female

DRUGS (18)
  1. PULMICORT [Suspect]
     Indication: ASTHMA
     Route: 055
     Dates: start: 20070101, end: 20090328
  2. PULMICORT [Suspect]
     Indication: CHRONIC OBSTRUCTIVE PULMONARY DISEASE
     Route: 055
     Dates: start: 20070101, end: 20090328
  3. SYMBICORT [Suspect]
     Indication: ASTHMA
     Route: 055
     Dates: start: 20080101, end: 20080101
  4. SYMBICORT [Suspect]
     Indication: CHRONIC OBSTRUCTIVE PULMONARY DISEASE
     Route: 055
     Dates: start: 20080101, end: 20080101
  5. VENTOLIN PUFFER [Concomitant]
     Route: 055
     Dates: end: 20090328
  6. ADVAIR HFA [Concomitant]
     Route: 055
  7. DIURETIC [Concomitant]
     Indication: HYPERTENSION
     Dosage: 1/2 TAB
  8. DOCUSATE SODIUM [Concomitant]
  9. SENOKOT [Concomitant]
  10. CELEBREX [Concomitant]
  11. QUININE [Concomitant]
     Indication: MUSCLE SPASMS
  12. CLONAZEPAM [Concomitant]
     Indication: ANXIETY
  13. PREMARIN [Concomitant]
  14. BACLOFEN [Concomitant]
  15. LONG ACTING DILAUDID [Concomitant]
     Indication: PAIN
  16. ENDOCET [Concomitant]
     Indication: PAIN
  17. RANITIDINE [Concomitant]
     Indication: GASTROOESOPHAGEAL REFLUX DISEASE
  18. NAPROXEN [Concomitant]

REACTIONS (15)
  - ARTHRALGIA [None]
  - BLOOD SODIUM DECREASED [None]
  - BRONCHITIS [None]
  - BURNING SENSATION [None]
  - CONTUSION [None]
  - DYSGEUSIA [None]
  - DYSPNOEA [None]
  - EYELID DISORDER [None]
  - HEADACHE [None]
  - HYPERTENSION [None]
  - JOINT SWELLING [None]
  - PAIN [None]
  - RASH [None]
  - RHINORRHOEA [None]
  - WHEEZING [None]
